FAERS Safety Report 4611768-3 (Version None)
Quarter: 2005Q2

REPORT INFORMATION
  Report Type: 
  Country: None (occurrence: None)
  Receive Date: 20050308
  Receipt Date: 20041207
  Transmission Date: 20051028
  Serious: Yes (Other)
  Sender: FDA-Public Use
  Company Number: 2004UW24929

PATIENT
  Age: 45 Year
  Sex: Male
  Weight: 88.45 kg

DRUGS (2)
  1. CRESTOR [Suspect]
     Indication: BLOOD CHOLESTEROL INCREASED
     Dosage: 20 MG PO
     Route: 048
  2. LIPITOR [Concomitant]

REACTIONS (3)
  - ASTHENIA [None]
  - MUSCLE TWITCHING [None]
  - PAIN IN EXTREMITY [None]
